FAERS Safety Report 5948166-6 (Version None)
Quarter: 2008Q4

REPORT INFORMATION
  Report Type: 
  Country: None (occurrence: None)
  Receive Date: 20081107
  Receipt Date: 20081103
  Transmission Date: 20090506
  Serious: Yes (Death, Other)
  Sender: FDA-Public Use
  Company Number: ENTC2008-0320

PATIENT
  Age: 72 Year
  Sex: Female

DRUGS (1)
  1. STALEVO 100 [Suspect]
     Indication: PARKINSON'S DISEASE
     Dosage: 1 DF, TID (150/37,5/200) ORAL
     Route: 048
     Dates: start: 20070501, end: 20080927

REACTIONS (1)
  - COLON CANCER [None]
